FAERS Safety Report 8563964-0 (Version None)
Quarter: 2012Q3

REPORT INFORMATION
  Report Type: 
  Country: None (occurrence: None)
  Receive Date: 20120803
  Receipt Date: 20120727
  Transmission Date: 20120928
  Serious: Yes (Other)
  Sender: FDA-Public Use
  Company Number: PHEH2012US014964

PATIENT
  Sex: Female
  Weight: 63.492 kg

DRUGS (3)
  1. VITAMIN D [Concomitant]
  2. RECLAST [Suspect]
     Indication: OSTEOPOROSIS
     Dosage: 5 MG/100 ML, ONCE YEARLY
     Route: 042
     Dates: start: 20120720
  3. CALCIUM CARBONATE [Concomitant]

REACTIONS (2)
  - EYE PAIN [None]
  - OCULAR HYPERAEMIA [None]
